FAERS Safety Report 8961801 (Version 1)
Quarter: 2012Q4

REPORT INFORMATION
  Report Type: 
  Country: BE (occurrence: BE)
  Receive Date: 20121213
  Receipt Date: 20121213
  Transmission Date: 20130627
  Serious: Yes (Hospitalization)
  Sender: FDA-Public Use
  Company Number: BE-BAYER-2011-012445

PATIENT
  Age: 69 Year
  Sex: Male
  Weight: 67 kg

DRUGS (6)
  1. SORAFENIB (RAF KINASE INHIBITOR) [Suspect]
     Indication: CARCINOMA HEPATOCELLULAR
     Dosage: 400 mg, BID
     Route: 048
     Dates: start: 20100715, end: 20101130
  2. SORAFENIB (RAF KINASE INHIBITOR) [Suspect]
     Indication: CARCINOMA HEPATOCELLULAR
     Dosage: UNK
     Route: 048
     Dates: start: 20101216, end: 20101228
  3. PANTOPRAZOLE SODIUM [Concomitant]
     Indication: ESOPHAGITIS
     Dosage: 40 mg, QD
     Dates: start: 2007
  4. PROBIOTICS [Concomitant]
     Indication: DIARRHEA
     Dosage: 1 dosage form, qd
     Dates: start: 20100831, end: 20101005
  5. LOPERAMIDE HYDROCHLORIDE [Concomitant]
     Indication: DIARRHEA
     Dosage: 2 mg, PRN
     Dates: start: 20100831, end: 20101021
  6. CODEINE PHOSPHATE [Concomitant]
     Indication: DIARRHEA
     Dosage: 60 mg, BID
     Dates: start: 20101109, end: 20101111

REACTIONS (1)
  - Cholestasis [Recovering/Resolving]
